FAERS Safety Report 7089692-9 (Version None)
Quarter: 2010Q4

REPORT INFORMATION
  Report Type: 
  Country: None (occurrence: None)
  Receive Date: 20101108
  Receipt Date: 20100125
  Transmission Date: 20110411
  Serious: No
  Sender: FDA-Public Use
  Company Number: US-ABBOTT-10P-163-0622548-00

PATIENT
  Sex: Male
  Weight: 86.26 kg

DRUGS (2)
  1. TRICOR [Suspect]
     Indication: BLOOD TRIGLYCERIDES INCREASED
     Dates: start: 20100115, end: 20100116
  2. COUMADIN [Concomitant]
     Indication: ATRIAL FIBRILLATION

REACTIONS (3)
  - ABDOMINAL DISCOMFORT [None]
  - FEELING JITTERY [None]
  - PSYCHOMOTOR HYPERACTIVITY [None]
